FAERS Safety Report 5746509-X (Version None)
Quarter: 2008Q2

REPORT INFORMATION
  Report Type: 
  Country: None (occurrence: None)
  Receive Date: 20080522
  Receipt Date: 20080515
  Transmission Date: 20081010
  Serious: Yes (Other)
  Sender: FDA-Public Use
  Company Number: PHHY2008JP05418

PATIENT

DRUGS (3)
  1. DIOVAN [Suspect]
     Route: 048
     Dates: start: 20080302, end: 20080324
  2. LASIX [Concomitant]
     Dates: start: 20080302, end: 20080324
  3. CLARITHROMYCIN [Concomitant]
     Dates: start: 20080302, end: 20080324

REACTIONS (1)
  - INTERSTITIAL LUNG DISEASE [None]
